FAERS Safety Report 7824585-8 (Version None)
Quarter: 2011Q4

REPORT INFORMATION
  Report Type: 
  Country: None (occurrence: None)
  Receive Date: 20111019
  Receipt Date: 20111006
  Transmission Date: 20120403
  Serious: Yes (Hospitalization)
  Sender: FDA-Public Use
  Company Number: GR-ELI_LILLY_AND_COMPANY-GR201109007531

PATIENT
  Age: 46 Year
  Sex: Male
  Weight: 82 kg

DRUGS (5)
  1. OLANZAPINE [Suspect]
     Indication: BIPOLAR I DISORDER
     Dosage: 300 MG, EVERY 4 WEEKS
     Route: 030
     Dates: start: 20100301
  2. DEPAKENE [Concomitant]
     Indication: BIPOLAR I DISORDER
     Dosage: 500MG THREE TIMES DAILY
     Route: 048
     Dates: start: 20100301
  3. NORGESIC                           /00040301/ [Concomitant]
     Indication: MUSCULOSKELETAL PAIN
     Dosage: UNK
     Dates: start: 20110920
  4. VOLTAREN                                /SCH/ [Concomitant]
     Indication: MUSCULOSKELETAL PAIN
     Dosage: UNK
     Dates: start: 20110920
  5. ZYPREXA [Suspect]
     Indication: BIPOLAR I DISORDER
     Dosage: 10 MG, QD
     Route: 048
     Dates: start: 20100301

REACTIONS (5)
  - DYSARTHRIA [None]
  - DIZZINESS [None]
  - CONFUSIONAL STATE [None]
  - CHILLS [None]
  - GAIT DISTURBANCE [None]
